FAERS Safety Report 6144547-9 (Version None)
Quarter: 2009Q2

REPORT INFORMATION
  Report Type: 
  Country: None (occurrence: None)
  Receive Date: 20090406
  Receipt Date: 20090328
  Transmission Date: 20091009
  Serious: Yes (Other)
  Sender: FDA-Public Use
  Company Number: PHHY2009ES11927

PATIENT
  Sex: Female

DRUGS (1)
  1. ACLASTA [Suspect]

REACTIONS (3)
  - ANAEMIA [None]
  - HYPERPARATHYROIDISM [None]
  - MASTOCYTOSIS [None]
